FAERS Safety Report 23218468 (Version 2)
Quarter: 2024Q1

REPORT INFORMATION
  Report Type: Report from Study
  Country: TH (occurrence: TH)
  Receive Date: 20231122
  Receipt Date: 20240202
  Transmission Date: 20240409
  Serious: Yes (Death, Hospitalization)
  Sender: FDA-Public Use
  Company Number: TH-Eisai-EC-2023-153458

PATIENT
  Age: 79 Year
  Sex: Female

DRUGS (2)
  1. LENVIMA [Suspect]
     Active Substance: LENVATINIB
     Indication: Hepatocellular carcinoma
     Dosage: STOPPED: OCT//2023
     Route: 048
     Dates: start: 20231002
  2. LENVIMA [Suspect]
     Active Substance: LENVATINIB
     Route: 048
     Dates: start: 202310, end: 20240126

REACTIONS (3)
  - Thrombocytopenia [Not Recovered/Not Resolved]
  - Malignant neoplasm progression [Fatal]
  - Ecchymosis [Recovered/Resolved]

NARRATIVE: CASE EVENT DATE: 20231001
